FAERS Safety Report 9524556 (Version 1)
Quarter: 2013Q3

REPORT INFORMATION
  Report Type: Spontaneous
  Country: US (occurrence: US)
  Receive Date: 20130916
  Receipt Date: 20130916
  Transmission Date: 20140515
  Serious: No
  Sender: FDA-Public Use
  Company Number: US-PFIZER INC-2013265077

PATIENT
  Age: 62 Year
  Sex: Female
  Weight: 59.86 kg

DRUGS (4)
  1. LYRICA [Suspect]
     Indication: FIBROMYALGIA
     Dosage: 75 MG, 1X/DAY
  2. LYRICA [Suspect]
     Dosage: 75 MG, 2X/DAY
  3. LYRICA [Suspect]
     Dosage: 75 MG, 1X/DAY
  4. HYDROCODONE [Concomitant]
     Indication: BACK DISORDER
     Dosage: 7.5 MG, 1X/DAY

REACTIONS (4)
  - Somnolence [Unknown]
  - Dizziness [Recovering/Resolving]
  - Vision blurred [Unknown]
  - Intentional drug misuse [Unknown]
